FAERS Safety Report 4485538-3 (Version None)
Quarter: 2004Q4

REPORT INFORMATION
  Report Type: 
  Country: None (occurrence: None)
  Receive Date: 20041021
  Receipt Date: 20041006
  Transmission Date: 20050328
  Serious: Yes (Death)
  Sender: FDA-Public Use
  Company Number: 2004AL000569

PATIENT
  Age: 25 Year

DRUGS (3)
  1. KADIAN [Suspect]
  2. BENZODIAZEPINE [Suspect]
  3. AMPHETAMINE [Suspect]

REACTIONS (2)
  - CARDIO-RESPIRATORY ARREST [None]
  - UNEVALUABLE EVENT [None]
